FAERS Safety Report 7011055-2 (Version None)
Quarter: 2010Q3

REPORT INFORMATION
  Report Type: 
  Country: None (occurrence: None)
  Receive Date: 20100923
  Receipt Date: 20081114
  Transmission Date: 20110219
  Serious: No
  Sender: FDA-Public Use
  Company Number: US-WYE-H06854308

PATIENT
  Sex: Female
  Weight: 76.73 kg

DRUGS (12)
  1. PREMARIN [Suspect]
     Indication: VAGINAL INFECTION
     Dosage: 0.5 MG 3-7 TIMES WEEKLY
     Route: 067
     Dates: start: 20081001
  2. DILANTIN [Concomitant]
  3. LISINOPRIL [Concomitant]
  4. FUROSEMIDE [Concomitant]
  5. COMPAZINE [Concomitant]
  6. PRAVACHOL [Concomitant]
  7. LORAZEPAM [Concomitant]
  8. LORATADINE [Concomitant]
  9. PROTONIX [Concomitant]
  10. VITAMIN A [Concomitant]
  11. LEXAPRO [Concomitant]
  12. LORATADINE [Concomitant]

REACTIONS (1)
  - VAGINAL ODOUR [None]
